FAERS Safety Report 7056275-6 (Version None)
Quarter: 2010Q4

REPORT INFORMATION
  Report Type: 
  Country: None (occurrence: None)
  Receive Date: 20101021
  Receipt Date: 20101008
  Transmission Date: 20110411
  Serious: Yes (Hospitalization)
  Sender: FDA-Public Use
  Company Number: US-SHIONOGI USA, INC-2010000051

PATIENT
  Age: 13 Year
  Sex: Male

DRUGS (1)
  1. EPINEPHRINE (GREENSTONE) [Suspect]
     Indication: HYPERSENSITIVITY
     Dosage: UNK, AS NEEDED
     Route: 030
     Dates: start: 20100806, end: 20100806

REACTIONS (2)
  - DEVICE MALFUNCTION [None]
  - PRODUCT QUALITY ISSUE [None]
